FAERS Safety Report 16983582 (Version 1)
Quarter: 2019Q4

REPORT INFORMATION
  Report Type: Spontaneous
  Country: US (occurrence: US)
  Receive Date: 20190916
  Receipt Date: 20190916
  Transmission Date: 20200122
  Serious: Yes (Death)
  Sender: FDA-Public Use
  Company Number: None

PATIENT

DRUGS (1)
  1. SILDENAFIL TAB 20 MG [Suspect]
     Active Substance: SILDENAFIL
     Dates: start: 201903

REACTIONS (1)
  - Death [None]

NARRATIVE: CASE EVENT DATE: 20190910
